FAERS Safety Report 9377581 (Version 2)
Quarter: 2013Q3

REPORT INFORMATION
  Report Type: Spontaneous
  Country: US (occurrence: US)
  Receive Date: 20130701
  Receipt Date: 20130731
  Transmission Date: 20140515
  Serious: No
  Sender: FDA-Public Use
  Company Number: US-009507513-1306USA014234

PATIENT
  Sex: Male
  Weight: 76.19 kg

DRUGS (2)
  1. LOTRIMIN ULTRA [Suspect]
     Indication: PAIN IN EXTREMITY
     Dosage: UNK, ONCE
     Route: 061
  2. LOTRIMIN ULTRA [Suspect]
     Indication: MEDICAL OBSERVATION

REACTIONS (4)
  - Chest pain [Unknown]
  - Burning sensation [Recovered/Resolved]
  - Skin irritation [Unknown]
  - Headache [Unknown]
